FAERS Safety Report 18412989 (Version 2)
Quarter: 2021Q1

REPORT INFORMATION
  Report Type: Spontaneous
  Country: CA (occurrence: CA)
  Receive Date: 20201021
  Receipt Date: 20210214
  Transmission Date: 20210419
  Serious: Yes (Other)
  Sender: FDA-Public Use
  Company Number: CA-JNJFOC-20201026772

PATIENT
  Sex: Male

DRUGS (4)
  1. METHOTREXATE. [Suspect]
     Active Substance: METHOTREXATE
     Indication: COLITIS ULCERATIVE
     Route: 065
  2. MESALAZINE [Suspect]
     Active Substance: MESALAMINE
     Indication: COLITIS ULCERATIVE
     Dosage: TABLET (DELAYED AND EXTEND
     Route: 065
  3. AZATHIOPRINE SODIUM. [Suspect]
     Active Substance: AZATHIOPRINE SODIUM
     Indication: COLITIS ULCERATIVE
     Route: 065
  4. REMICADE [Suspect]
     Active Substance: INFLIXIMAB
     Indication: COLITIS ULCERATIVE
     Route: 042

REACTIONS (4)
  - Product use in unapproved indication [Unknown]
  - Off label use [Unknown]
  - Pancreatitis [Unknown]
  - Treatment failure [Unknown]
